FAERS Safety Report 9509762 (Version 1)
Quarter: 2013Q1

REPORT INFORMATION
  Report Type: Spontaneous
  Country: US (occurrence: None)
  Receive Date: 20130305
  Receipt Date: 20130305
  Transmission Date: 20140127
  Serious: Yes (Other)
  Sender: FDA-Public Use
  Company Number: 163-21880-12052266

PATIENT
  Age: 75 Year
  Sex: Male
  Weight: 76.98 kg

DRUGS (3)
  1. REVLIMID(LENALIDOMIDE) [Suspect]
     Indication: PLASMA CELL MYELOMA
     Route: 048
     Dates: start: 200909
  2. PROCARDIA(NIFEDIPINE) [Concomitant]
  3. DEXAMETHASONE [Concomitant]

REACTIONS (4)
  - Platelet count decreased [None]
  - Haemoglobin decreased [None]
  - White blood cell count decreased [None]
  - Haematocrit decreased [None]
